FAERS Safety Report 4490240-8 (Version None)
Quarter: 2004Q4

REPORT INFORMATION
  Report Type: 
  Country: None (occurrence: None)
  Receive Date: 20041027
  Receipt Date: 20041018
  Transmission Date: 20050328
  Serious: Yes (Life-Threatening, Hospitalization)
  Sender: FDA-Public Use
  Company Number: 2004AC00593

PATIENT
  Age: 31 Year
  Sex: Female

DRUGS (2)
  1. QUETIAPINE [Suspect]
     Dosage: 6 G ONCE PO
     Route: 048
  2. ALCOHOL [Concomitant]

REACTIONS (11)
  - ALCOHOL USE [None]
  - CHEST X-RAY ABNORMAL [None]
  - CRACKLES LUNG [None]
  - ELECTROCARDIOGRAM QT PROLONGED [None]
  - EXTENSOR PLANTAR RESPONSE [None]
  - HYPOTENSION [None]
  - INTENTIONAL OVERDOSE [None]
  - NON-CARDIOGENIC PULMONARY OEDEMA [None]
  - PO2 INCREASED [None]
  - SINUS TACHYCARDIA [None]
  - STRABISMUS [None]
